FAERS Safety Report 23335684 (Version 1)
Quarter: 2023Q4

REPORT INFORMATION
  Report Type: Spontaneous
  Country: JP (occurrence: JP)
  Receive Date: 20231225
  Receipt Date: 20231225
  Transmission Date: 20240110
  Serious: Yes (Hospitalization, Other)
  Sender: FDA-Public Use
  Company Number: JP-IPCA LABORATORIES LIMITED-IPC-2023-JP-002288

PATIENT

DRUGS (5)
  1. WARFARIN [Suspect]
     Active Substance: WARFARIN
     Indication: Product used for unknown indication
     Dosage: UNK
     Route: 064
  2. ADALIMUMAB [Suspect]
     Active Substance: ADALIMUMAB\ISOPROPYL ALCOHOL
     Indication: Crohn^s disease
     Dosage: 80 MILLIGRAM/2WEEKS
     Route: 064
  3. AZATHIOPRINE [Suspect]
     Active Substance: AZATHIOPRINE
     Indication: Crohn^s disease
     Dosage: UNK
     Route: 064
  4. FOLIC ACID [Suspect]
     Active Substance: FOLIC ACID
     Indication: Product used for unknown indication
     Dosage: UNK
     Route: 064
  5. AMPICILLIN [Suspect]
     Active Substance: AMPICILLIN
     Indication: Product used for unknown indication
     Dosage: UNK
     Route: 064

REACTIONS (10)
  - Cephalhaematoma [Recovering/Resolving]
  - Normocytic anaemia [Recovering/Resolving]
  - Cerebellar haemorrhage [Recovering/Resolving]
  - Venous thrombosis [Recovering/Resolving]
  - Hydrocephalus [Recovering/Resolving]
  - Vitamin K deficiency [Recovering/Resolving]
  - Haemorrhage [Recovering/Resolving]
  - Apnoea [Recovering/Resolving]
  - Coma [Recovering/Resolving]
  - Foetal exposure during pregnancy [Unknown]
